FAERS Safety Report 23404031 (Version 1)
Quarter: 2024Q1

REPORT INFORMATION
  Report Type: Spontaneous
  Country: DE (occurrence: DE)
  Receive Date: 20240116
  Receipt Date: 20240116
  Transmission Date: 20240410
  Serious: Yes (Other)
  Sender: FDA-Public Use
  Company Number: DE-SA-2024SA014222

PATIENT
  Age: 62 Year
  Sex: Female

DRUGS (2)
  1. LEFLUNOMIDE [Suspect]
     Active Substance: LEFLUNOMIDE
     Indication: Rheumatoid arthritis
     Dosage: 100 MG, QD
  2. LEFLUNOMIDE [Suspect]
     Active Substance: LEFLUNOMIDE
     Dosage: 20  MG (CONTINUOUS DOSE)

REACTIONS (19)
  - Erythema multiforme [Recovered/Resolved]
  - Erythema [Recovered/Resolved]
  - Blister [Recovered/Resolved]
  - Pyrexia [Recovered/Resolved]
  - Lip erosion [Recovered/Resolved]
  - Chills [Recovered/Resolved]
  - Oral mucosa erosion [Recovered/Resolved]
  - Asthenia [Recovered/Resolved]
  - Dyspnoea [Recovered/Resolved]
  - Rash [Recovered/Resolved]
  - Rash erythematous [Recovered/Resolved]
  - Oedema peripheral [Recovered/Resolved]
  - Epidermolysis [Recovered/Resolved]
  - Digital pulpitis [Recovered/Resolved]
  - Scab [Recovered/Resolved]
  - Leukocytosis [Recovered/Resolved]
  - Epidermal necrosis [Recovered/Resolved]
  - Eczema [Recovered/Resolved]
  - Lymphocytic infiltration [Recovered/Resolved]
